FAERS Safety Report 5333403-1 (Version None)
Quarter: 2007Q2

REPORT INFORMATION
  Report Type: 
  Country: None (occurrence: None)
  Receive Date: 20070522
  Receipt Date: 20070522
  Transmission Date: 20071010
  Serious: No
  Sender: FDA-Public Use
  Company Number: None

PATIENT
  Age: 54 Year
  Sex: Male

DRUGS (2)
  1. PIPERACILLIN AND TAZOBACTAM [Suspect]
     Indication: URINARY TRACT INFECTION
     Dosage: 3.375GM QID IV
     Route: 042
     Dates: start: 20070211, end: 20070216
  2. TOBRAMYCIN [Suspect]
     Dosage: 240MG BID IV
     Route: 042

REACTIONS (3)
  - PRURITUS [None]
  - RASH [None]
  - URTICARIA [None]
